FAERS Safety Report 7994052-X (Version None)
Quarter: 2011Q4

REPORT INFORMATION
  Report Type: 
  Country: None (occurrence: None)
  Receive Date: 20111220
  Receipt Date: 20111208
  Transmission Date: 20120403
  Serious: Yes (Other)
  Sender: FDA-Public Use
  Company Number: US-BAYER-2011-118664

PATIENT
  Sex: Female

DRUGS (4)
  1. YAZ [Suspect]
     Indication: MENORRHAGIA
  2. YAZ [Suspect]
     Indication: CONTRACEPTION
     Dosage: UNK
     Route: 048
     Dates: end: 20100101
  3. YAZ [Suspect]
     Indication: DYSMENORRHOEA
  4. LUPRON [Concomitant]

REACTIONS (5)
  - OVARIAN CYST RUPTURED [None]
  - ABDOMINAL PAIN [None]
  - PYREXIA [None]
  - ENDOMETRIOSIS [None]
  - MENORRHAGIA [None]
